FAERS Safety Report 6752270-2 (Version None)
Quarter: 2010Q2

REPORT INFORMATION
  Report Type: 
  Country: None (occurrence: None)
  Receive Date: 20100602
  Receipt Date: 20100526
  Transmission Date: 20101027
  Serious: Yes (Other)
  Sender: FDA-Public Use
  Company Number: US-JNJFOC-20100510463

PATIENT
  Sex: Female

DRUGS (3)
  1. IMODIUM MULTI-SYMPTOM RELIEF [Suspect]
     Route: 048
  2. IMODIUM MULTI-SYMPTOM RELIEF [Suspect]
     Indication: DRUG USE FOR UNKNOWN INDICATION
     Route: 048
  3. UNKNOWN MEDICATION [Concomitant]
     Route: 065

REACTIONS (2)
  - FAECES DISCOLOURED [None]
  - HAEMATOCHEZIA [None]
